FAERS Safety Report 9055722 (Version 1)
Quarter: 2013Q1

REPORT INFORMATION
  Report Type: Spontaneous
  Country: DE (occurrence: DE)
  Receive Date: 20130206
  Receipt Date: 20130206
  Transmission Date: 20140127
  Serious: Yes (Other)
  Sender: FDA-Public Use
  Company Number: DE-EISAI INC-E2007-01052-SPO-DE

PATIENT
  Age: 19 Year
  Sex: Male

DRUGS (7)
  1. PERAMPANEL [Suspect]
     Indication: EPILEPSY
     Route: 048
     Dates: start: 20121221
  2. PHENYTOIN [Concomitant]
     Indication: EPILEPSY
     Route: 048
  3. VALPROATE [Concomitant]
     Indication: EPILEPSY
     Route: 048
  4. ETHOSUXIMIDE [Concomitant]
     Indication: EPILEPSY
     Route: 048
  5. CLONAZEPAM [Concomitant]
     Indication: EPILEPSY
     Route: 048
  6. DIAZEPAM [Concomitant]
     Indication: EPILEPSY
     Route: 048
     Dates: start: 20130202
  7. LORAZEPAM [Concomitant]
     Indication: EPILEPSY
     Route: 048

REACTIONS (2)
  - Status epilepticus [Recovered/Resolved]
  - Cardiovascular disorder [None]
